FAERS Safety Report 11343059 (Version 1)
Quarter: 2015Q3

REPORT INFORMATION
  Report Type: Spontaneous
  Country: US (occurrence: US)
  Receive Date: 20150805
  Receipt Date: 20150805
  Transmission Date: 20151125
  Serious: No
  Sender: FDA-Public Use
  Company Number: US-ANACOR-2015ANA00071

PATIENT
  Age: 60 Year
  Sex: Female

DRUGS (2)
  1. KERYDIN [Suspect]
     Active Substance: TAVABOROLE
     Indication: ONYCHOMYCOSIS
     Dosage: UNK
     Route: 061
     Dates: start: 201506, end: 201506
  2. KERYDIN [Suspect]
     Active Substance: TAVABOROLE
     Dosage: UNK
     Route: 061
     Dates: start: 201506

REACTIONS (1)
  - Nail discolouration [Recovering/Resolving]

NARRATIVE: CASE EVENT DATE: 201506
